FAERS Safety Report 24439997 (Version 1)
Quarter: 2024Q4

REPORT INFORMATION
  Report Type: Spontaneous
  Country: US (occurrence: US)
  Receive Date: 20241016
  Receipt Date: 20241016
  Transmission Date: 20250114
  Serious: No
  Sender: RANBAXY
  Company Number: US-SUN PHARMACEUTICAL INDUSTRIES LTD-2023R1-418935

PATIENT
  Sex: Female

DRUGS (1)
  1. WINLEVI [Suspect]
     Active Substance: CLASCOTERONE
     Indication: Acne
     Dosage: UNK (ONCE AT BEDTIME)
     Route: 065

REACTIONS (7)
  - Acne [Unknown]
  - Drug ineffective [Unknown]
  - Swelling face [Unknown]
  - Facial pain [Unknown]
  - Tenderness [Unknown]
  - Skin burning sensation [Unknown]
  - Acne pustular [Unknown]
